FAERS Safety Report 7075559-9 (Version None)
Quarter: 2010Q4

REPORT INFORMATION
  Report Type: 
  Country: None (occurrence: None)
  Receive Date: 20101030
  Receipt Date: 20100924
  Transmission Date: 20110411
  Serious: Yes (Other)
  Sender: FDA-Public Use
  Company Number: US-WYE-H17770610

PATIENT
  Sex: Male
  Weight: 63 kg

DRUGS (2)
  1. TYGACIL [Suspect]
     Indication: PNEUMONIA
     Dosage: LOADING DOSE 100 MG; FOLLOWED BY 50 MG TWICE DAILY
     Dates: start: 20100918
  2. LOVENOX [Concomitant]

REACTIONS (1)
  - THROMBOCYTOPENIA [None]
